FAERS Safety Report 21174264 (Version 1)
Quarter: 2022Q3

REPORT INFORMATION
  Report Type: Spontaneous
  Country: US (occurrence: US)
  Receive Date: 20220804
  Receipt Date: 20220804
  Transmission Date: 20221027
  Serious: Yes (Hospitalization)
  Sender: FDA-Public Use
  Company Number: US-Fresenius Medical Care Renal Therapies Group-FMC-2207-001086

PATIENT
  Age: 82 Year
  Sex: Male

DRUGS (3)
  1. DELFLEX WITH DEXTROSE 1.5% LOW MAGNESIUM LOW CALCIUM [Suspect]
     Active Substance: CALCIUM CHLORIDE\DEXTROSE\MAGNESIUM CHLORIDE\SODIUM CHLORIDE\SODIUM LACTATE
     Indication: End stage renal disease
     Dosage: 7 DAYS A WEEK, DEXTROSE SOLUTIONS, EXCHANGES 4, FILL VOLUME 2700 ML, LAST FILL VOLUME N/A, TOTAL VOL
     Route: 033
     Dates: start: 20210323
  2. DELFLEX WITH DEXTROSE 2.5% LOW MAGNESIUM LOW CALCIUM [Suspect]
     Active Substance: CALCIUM CHLORIDE\DEXTROSE\MAGNESIUM CHLORIDE\SODIUM CHLORIDE\SODIUM LACTATE
     Indication: End stage renal disease
     Dosage: 7 DAYS A WEEK, DEXTROSE SOLUTIONS, EXCHANGES 4, FILL VOLUME 2700 ML, LAST FILL VOLUME N/A, TOTAL VOL
     Route: 033
     Dates: start: 20210323
  3. DELFLEX WITH DEXTROSE 4.25% LOW MAGNESIUM LOW CALCIUM [Suspect]
     Active Substance: CALCIUM CHLORIDE\DEXTROSE\MAGNESIUM CHLORIDE\SODIUM CHLORIDE\SODIUM LACTATE
     Indication: End stage renal disease
     Dosage: 7 DAYS A WEEK, DEXTROSE SOLUTIONS, EXCHANGES 4, FILL VOLUME 2700 ML, LAST FILL VOLUME N/A, TOTAL VOL
     Route: 033
     Dates: start: 20210323

REACTIONS (1)
  - Physical deconditioning [Recovering/Resolving]
